FAERS Safety Report 21375911 (Version 1)
Quarter: 2022Q3

REPORT INFORMATION
  Report Type: Spontaneous
  Country: DE (occurrence: DE)
  Receive Date: 20220926
  Receipt Date: 20220926
  Transmission Date: 20221026
  Serious: Yes (Hospitalization)
  Sender: FDA-Public Use
  Company Number: DE-NOVARTISPH-NVSC2022DE215654

PATIENT
  Age: 75 Year
  Sex: Male
  Weight: 106 kg

DRUGS (8)
  1. BISOPROLOL [Suspect]
     Active Substance: BISOPROLOL
     Indication: Product used for unknown indication
     Dosage: 25 MG, QD (1-0-0-0)
     Route: 065
  2. SERTRALINE HYDROCHLORIDE [Concomitant]
     Active Substance: SERTRALINE HYDROCHLORIDE
     Indication: Product used for unknown indication
     Dosage: 5 MG, QD (0-0-1-0)
     Route: 065
  3. TORSEMIDE [Concomitant]
     Active Substance: TORSEMIDE
     Indication: Product used for unknown indication
     Dosage: 10 MG, QD (1-0-0-0)
     Route: 065
  4. ASPIRIN [Concomitant]
     Active Substance: ASPIRIN
     Indication: Product used for unknown indication
     Dosage: 100 MG, QD (1-0-0-0)
     Route: 065
  5. LEVOTHYROXINE SODIUM [Concomitant]
     Active Substance: LEVOTHYROXINE SODIUM
     Indication: Product used for unknown indication
     Dosage: 75 UG, QD (1-0-0-0)
     Route: 065
  6. APIXABAN [Concomitant]
     Active Substance: APIXABAN
     Indication: Product used for unknown indication
     Dosage: 5 MG, BID (1-0-1-0)
     Route: 065
  7. SACUBITRIL [Concomitant]
     Active Substance: SACUBITRIL
     Indication: Product used for unknown indication
     Dosage: 24/26 MG, BID (1-0-1-0)
     Route: 065
  8. PANTOPRAZOLE [Concomitant]
     Active Substance: PANTOPRAZOLE
     Indication: Product used for unknown indication
     Dosage: 40 MG, QD (1-0-0-0)
     Route: 065

REACTIONS (12)
  - Cardiac failure [Recovered/Resolved]
  - Atrial fibrillation [Recovered/Resolved]
  - Condition aggravated [Recovered/Resolved]
  - Cough [Recovered/Resolved]
  - Weight increased [Recovered/Resolved]
  - Atrial fibrillation [Recovered/Resolved]
  - General physical health deterioration [Recovered/Resolved]
  - Renal impairment [Recovered/Resolved]
  - Electrocardiogram abnormal [Recovered/Resolved]
  - Wheezing [Recovered/Resolved]
  - Chronic obstructive pulmonary disease [Recovered/Resolved]
  - Dyspnoea [Recovered/Resolved]
